FAERS Safety Report 22840565 (Version 7)
Quarter: 2025Q1

REPORT INFORMATION
  Report Type: Spontaneous
  Country: US (occurrence: US)
  Receive Date: 20230819
  Receipt Date: 20250204
  Transmission Date: 20250408
  Serious: Yes (Other)
  Sender: SANOFI AVENTIS
  Company Number: US-SA-SAC20230721000216

PATIENT
  Age: 67 Year
  Sex: Female

DRUGS (4)
  1. DUPIXENT [Suspect]
     Active Substance: DUPILUMAB
     Indication: Asthma
     Route: 058
     Dates: start: 20230717, end: 20230717
  2. DUPIXENT [Suspect]
     Active Substance: DUPILUMAB
     Dosage: 300 MG, QOW
     Route: 058
     Dates: start: 2023, end: 202408
  3. SINGULAIR [Suspect]
     Active Substance: MONTELUKAST SODIUM
     Route: 065
     Dates: end: 202308
  4. INCRUSE ELLIPTA [Concomitant]
     Active Substance: UMECLIDINIUM BROMIDE

REACTIONS (19)
  - Pneumonitis [Recovering/Resolving]
  - Productive cough [Recovering/Resolving]
  - Pulmonary mass [Recovering/Resolving]
  - Night sweats [Unknown]
  - Feeling abnormal [Not Recovered/Not Resolved]
  - Aphonia [Recovered/Resolved]
  - Cough [Unknown]
  - Secretion discharge [Unknown]
  - Condition aggravated [Unknown]
  - Formication [Not Recovered/Not Resolved]
  - Malaise [Unknown]
  - Feeling jittery [Unknown]
  - Diarrhoea [Recovered/Resolved]
  - Injection site bruising [Unknown]
  - Asthma [Recovering/Resolving]
  - Cough [Recovering/Resolving]
  - Depression [Unknown]
  - Drug ineffective [Unknown]
  - Therapeutic response decreased [Unknown]

NARRATIVE: CASE EVENT DATE: 20230101
